FAERS Safety Report 14371520 (Version 1)
Quarter: 2018Q1

REPORT INFORMATION
  Report Type: Spontaneous
  Country: US (occurrence: US)
  Receive Date: 20180110
  Receipt Date: 20180110
  Transmission Date: 20180509
  Serious: Yes (Hospitalization, Other)
  Sender: FDA-Public Use
  Company Number: US-ZYDUS-018680

PATIENT
  Age: 42 Year
  Sex: Female

DRUGS (1)
  1. MORPHINE/MORPHINE HYDROCHLORIDE/MORPHINE SULFATE/MORPHINE TARTRATE [Suspect]
     Active Substance: MORPHINE\MORPHINE HYDROCHLORIDE\MORPHINE SULFATE\MORPHINE TARTRATE
     Indication: PRODUCT USED FOR UNKNOWN INDICATION
     Route: 037

REACTIONS (8)
  - Granuloma [Unknown]
  - Spinal cord oedema [Unknown]
  - Spinal cord compression [Unknown]
  - Radiculopathy [Recovered/Resolved]
  - Constipation [Unknown]
  - Urinary retention [Unknown]
  - Asthenia [Recovered/Resolved]
  - Anaesthesia [Recovered/Resolved]
